FAERS Safety Report 5097527-9 (Version None)
Quarter: 2006Q3

REPORT INFORMATION
  Report Type: 
  Country: None (occurrence: None)
  Receive Date: 20060901
  Receipt Date: 20060825
  Transmission Date: 20061208
  Serious: Yes (Death, Hospitalization)
  Sender: FDA-Public Use
  Company Number: 056-C5013-06081179

PATIENT
  Age: 69 Year
  Sex: Male

DRUGS (16)
  1. CC-5013 (LENALIDOMIDE) (CAPSULES) [Suspect]
     Indication: MULTIPLE MYELOMA
     Dosage: 25 MG, 1 IN 1 D, ORAL; 25 MG, 1 IN 1 D
     Route: 048
     Dates: start: 20060510, end: 20060531
  2. CC-5013 (LENALIDOMIDE) (CAPSULES) [Suspect]
     Indication: MULTIPLE MYELOMA
     Dosage: 25 MG, 1 IN 1 D, ORAL; 25 MG, 1 IN 1 D
     Route: 048
     Dates: start: 20060619, end: 20060623
  3. CLINOMEL (CLINOMEL) [Concomitant]
  4. DEXAMETHASONE TAB [Concomitant]
  5. VITAMIN PP (NICOTINIC ACID) [Concomitant]
  6. MORPHINE SULFATE [Concomitant]
  7. CANCIDAS [Concomitant]
  8. VITAMIN B1 TAB [Concomitant]
  9. VITAMIN B6 [Concomitant]
  10. KARDEGIC 100 (ACETYLSALICYLATE LYSINE) [Concomitant]
  11. AUGMENTIN '125' [Concomitant]
  12. LEVOFLOXACIN [Concomitant]
  13. CLAVENTIN (CLAVENTIN) [Concomitant]
  14. PYOSTACINE (PRISTINAMYCIN) [Concomitant]
  15. AMIKIN [Concomitant]
  16. ROCEPHIN [Concomitant]

REACTIONS (16)
  - ANOREXIA [None]
  - CATHETER SITE INFLAMMATION [None]
  - COMMUNICATION DISORDER [None]
  - CONFUSIONAL STATE [None]
  - DISORIENTATION [None]
  - DRUG RESISTANCE [None]
  - FALL [None]
  - GENERAL PHYSICAL CONDITION ABNORMAL [None]
  - HAEMOGLOBIN DECREASED [None]
  - HYPERSENSITIVITY [None]
  - HYPOTENSION [None]
  - LOSS OF CONSCIOUSNESS [None]
  - PLATELET COUNT DECREASED [None]
  - PULSE ABSENT [None]
  - PYREXIA [None]
  - WEIGHT DECREASED [None]
